FAERS Safety Report 8556690-5 (Version None)
Quarter: 2012Q3

REPORT INFORMATION
  Report Type: 
  Country: None (occurrence: None)
  Receive Date: 20120801
  Receipt Date: 20120718
  Transmission Date: 20120928
  Serious: Yes (Death, Other)
  Sender: FDA-Public Use
  Company Number: JP-ASTELLAS-2012US006554

PATIENT
  Age: 88 Year
  Sex: Female

DRUGS (1)
  1. TARCEVA [Suspect]
     Indication: LUNG ADENOCARCINOMA
     Dosage: UNK
     Route: 048

REACTIONS (3)
  - GASTROINTESTINAL DISORDER [None]
  - SKIN DISORDER [None]
  - NEOPLASM MALIGNANT [None]
